FAERS Safety Report 9655944 (Version 1)
Quarter: 2013Q4

REPORT INFORMATION
  Report Type: Spontaneous
  Country: GB (occurrence: GB)
  Receive Date: 20131030
  Receipt Date: 20131030
  Transmission Date: 20140711
  Serious: Yes (Hospitalization, Disabling)
  Sender: FDA-Public Use
  Company Number: GB-ACCORD-020071

PATIENT
  Age: 12 Year
  Sex: Female
  Weight: 54 kg

DRUGS (3)
  1. SALBUTAMOL [Concomitant]
  2. MONTELUKAST [Suspect]
     Indication: ASTHMA
     Route: 048
     Dates: start: 20130925, end: 20131003
  3. BECLOMETHASONE DIPROPIONATE [Concomitant]

REACTIONS (1)
  - Miller Fisher syndrome [Recovering/Resolving]
